FAERS Safety Report 18858573 (Version 1)
Quarter: 2021Q1

REPORT INFORMATION
  Report Type: Spontaneous
  Country: US (occurrence: US)
  Receive Date: 20210208
  Receipt Date: 20210208
  Transmission Date: 20210420
  Serious: No
  Sender: FDA-Public Use
  Company Number: None

PATIENT
  Age: 58 Year
  Sex: Male

DRUGS (1)
  1. REMDESIVIR (EUA) (REMDESIVIR (EUA)) [Suspect]
     Active Substance: REMDESIVIR
     Dates: start: 20200512, end: 20200517

REACTIONS (3)
  - Respiratory failure [None]
  - Acute kidney injury [None]
  - Blood urea increased [None]

NARRATIVE: CASE EVENT DATE: 20200517
